FAERS Safety Report 10950805 (Version 3)
Quarter: 2016Q2

REPORT INFORMATION
  Report Type: Spontaneous
  Country: US (occurrence: US)
  Receive Date: 20150324
  Receipt Date: 20160519
  Transmission Date: 20160815
  Serious: Yes (Life-Threatening, Congenital Anomaly, Other)
  Sender: FDA-Public Use
  Company Number: US-ELI_LILLY_AND_COMPANY-US201503005983

PATIENT
  Age: 16 Day

DRUGS (2)
  1. GLYBURIDE. [Concomitant]
     Active Substance: GLYBURIDE
     Indication: DIABETES MELLITUS
     Route: 064
  2. PROZAC [Suspect]
     Active Substance: FLUOXETINE HYDROCHLORIDE
     Indication: PRODUCT USED FOR UNKNOWN INDICATION
     Dosage: UNK, UNKNOWN
     Route: 064

REACTIONS (15)
  - Pulmonary embolism [Unknown]
  - Nonreassuring foetal heart rate pattern [Unknown]
  - Congenital pulmonary artery anomaly [Unknown]
  - Atrial septal defect [Recovered/Resolved]
  - Pyelocaliectasis [Unknown]
  - Foetal exposure during pregnancy [Unknown]
  - Apnoea [Unknown]
  - Respiratory distress [Unknown]
  - Pulmonary artery stenosis congenital [Unknown]
  - Meconium in amniotic fluid [Unknown]
  - Exposure during breast feeding [Unknown]
  - Hypoglycaemia neonatal [Unknown]
  - Large for dates baby [Unknown]
  - Patent ductus arteriosus [Recovered/Resolved]
  - Hydronephrosis [Unknown]

NARRATIVE: CASE EVENT DATE: 20121205
